FAERS Safety Report 18531100 (Version 2)
Quarter: 2020Q4

REPORT INFORMATION
  Report Type: Report from Study
  Country: CZ (occurrence: CZ)
  Receive Date: 20201122
  Receipt Date: 20201209
  Transmission Date: 20210114
  Serious: Yes (Other)
  Sender: FDA-Public Use
  Company Number: CZ-UCBSA-2020046272

PATIENT
  Age: 58 Year
  Sex: Female

DRUGS (11)
  1. SIRDALUD [Concomitant]
     Active Substance: TIZANIDINE
     Indication: MYALGIA
     Dosage: 2 MILLIGRAM, 3X/DAY (TID)
     Route: 048
     Dates: start: 2007
  2. GABAPENTIN. [Concomitant]
     Active Substance: GABAPENTIN
     Indication: NEURALGIA
     Dosage: 300 MILLIGRAM, 3X/DAY (TID)
     Route: 048
     Dates: start: 200711
  3. CERTOLIZUMAB PEGOL [Suspect]
     Active Substance: CERTOLIZUMAB PEGOL
     Indication: ANKYLOSING SPONDYLITIS
     Dosage: 200 MILLIGRAM, EV 2 WEEKS(QOW)
     Route: 058
     Dates: start: 20200526
  4. TRAMAL [Concomitant]
     Active Substance: TRAMADOL
     Indication: PAIN
     Dosage: 15 UNK, AS NEEDED (PRN)
     Route: 048
     Dates: start: 2007
  5. OMEPRAZOL [OMEPRAZOLE] [Concomitant]
     Active Substance: OMEPRAZOLE
     Indication: PROPHYLAXIS AGAINST GASTROINTESTINAL ULCER
     Dosage: 20 MILLIGRAM, ONCE DAILY (QD)
     Route: 048
     Dates: start: 2007
  6. TULIP [SIMVASTATIN] [Concomitant]
     Indication: HYPERCHOLESTEROLAEMIA
     Dosage: 10 MILLIGRAM, ONCE DAILY (QD)
     Route: 048
     Dates: start: 202010
  7. SURGAM [Concomitant]
     Active Substance: TIAPROFENIC ACID
     Indication: PAIN
     Dosage: 300 MILLIGRAM, AS NEEDED (PRN)
     Route: 048
     Dates: start: 20180905
  8. RIVOTRIL [Concomitant]
     Active Substance: CLONAZEPAM
     Indication: NEURALGIA
     Dosage: 0.5 MILLIGRAM, 2X/DAY (BID)
     Route: 048
     Dates: start: 2008
  9. VITAMIN D3 [Concomitant]
     Active Substance: CHOLECALCIFEROL
     Indication: OSTEOPOROSIS
     Dosage: 30000 INTERNATIONAL UNIT, MONTHLY (QM)
     Route: 048
     Dates: start: 20190806
  10. RISENDROS [Concomitant]
     Active Substance: RISEDRONATE SODIUM
     Indication: OSTEOPOROSIS
     Dosage: 35 MILLIGRAM, WEEKLY (QW)
     Route: 048
     Dates: start: 20160905
  11. CALTRATE [Concomitant]
     Active Substance: CALCIUM CARBONATE
     Indication: OSTEOPOROSIS
     Dosage: 600 MILLIGRAM, ONCE DAILY (QD)
     Route: 048
     Dates: start: 2010

REACTIONS (1)
  - Keratitis bacterial [Recovered/Resolved]

NARRATIVE: CASE EVENT DATE: 20200801
